FAERS Safety Report 13681260 (Version 1)
Quarter: 2017Q2

REPORT INFORMATION
  Report Type: Spontaneous
  Country: US (occurrence: US)
  Receive Date: 20170622
  Receipt Date: 20170622
  Transmission Date: 20170830
  Serious: Yes (Other)
  Sender: FDA-Public Use
  Company Number: None

PATIENT
  Age: 48 Year
  Sex: Female
  Weight: 52 kg

DRUGS (3)
  1. VITAMIN D2 [Concomitant]
     Active Substance: ERGOCALCIFEROL
  2. HUMIRA [Suspect]
     Active Substance: ADALIMUMAB
     Indication: PSORIATIC ARTHROPATHY
     Dosage: QUANTITY:2 INJECTION(S);OTHER FREQUENCY:TWICE A MONTH;?
     Route: 058
     Dates: start: 20170425, end: 20170620
  3. HUMIRA [Suspect]
     Active Substance: ADALIMUMAB
     Indication: PSORIASIS
     Dosage: QUANTITY:2 INJECTION(S);OTHER FREQUENCY:TWICE A MONTH;?
     Route: 058
     Dates: start: 20170425, end: 20170620

REACTIONS (2)
  - Menorrhagia [None]
  - Metrorrhagia [None]

NARRATIVE: CASE EVENT DATE: 20170610
